FAERS Safety Report 7916584-2 (Version None)
Quarter: 2011Q4

REPORT INFORMATION
  Report Type: 
  Country: None (occurrence: None)
  Receive Date: 20111031
  Receipt Date: 20111024
  Transmission Date: 20120403
  Serious: Yes (Other)
  Sender: FDA-Public Use
  Company Number: 2011030154

PATIENT
  Age: 23 Year
  Sex: Male

DRUGS (1)
  1. GAMMAR-P I.V. [Suspect]
     Indication: BRUTON'S AGAMMAGLOBULINAEMIA
     Dosage: (INTRAVENOUS (NOT OTHERWISE SPECIFIED)
     Route: 042

REACTIONS (6)
  - SINUSITIS [None]
  - CONJUNCTIVITIS [None]
  - DISEASE RECURRENCE [None]
  - GLOMERULONEPHRITIS MEMBRANOUS [None]
  - BLOOD IMMUNOGLOBULIN M DECREASED [None]
  - HYPERCALCIURIA [None]
